FAERS Safety Report 8484947-5 (Version None)
Quarter: 2012Q3

REPORT INFORMATION
  Report Type: 
  Country: None (occurrence: None)
  Receive Date: 20120703
  Receipt Date: 20120625
  Transmission Date: 20120928
  Serious: Yes (Other)
  Sender: FDA-Public Use
  Company Number: US-PFIZER INC-2012085667

PATIENT
  Sex: Female
  Weight: 66.667 kg

DRUGS (7)
  1. HYDROCODONE [Concomitant]
     Indication: PAIN IN EXTREMITY
     Dosage: 7.5 MG, AS NEEDED
  2. ESTRADIOL [Concomitant]
     Dosage: 1 MG, 1X/DAY
  3. ALLEGRA-D 12 HOUR [Concomitant]
     Indication: HYPERSENSITIVITY
     Dosage: UNK, 1X/DAY
  4. DEXLANSOPRAZOLE [Concomitant]
     Indication: GASTROOESOPHAGEAL REFLUX DISEASE
     Dosage: 60 MG, 1X/DAY
  5. REVATIO [Suspect]
     Dosage: 20 MG, 2X/DAY
     Route: 048
     Dates: end: 20120330
  6. PRAVASTATIN [Concomitant]
     Dosage: UNK, 1X/DAY
  7. REVATIO [Suspect]
     Indication: PULMONARY HYPERTENSION
     Dosage: 20 MG, 3X/DAY
     Route: 048
     Dates: start: 20070101

REACTIONS (9)
  - HYPOAESTHESIA [None]
  - PARAESTHESIA [None]
  - DIZZINESS [None]
  - HOT FLUSH [None]
  - POOR PERIPHERAL CIRCULATION [None]
  - LOSS OF CONSCIOUSNESS [None]
  - FATIGUE [None]
  - FEELING HOT [None]
  - PERIPHERAL COLDNESS [None]
